FAERS Safety Report 12466531 (Version 5)
Quarter: 2017Q2

REPORT INFORMATION
  Report Type: Spontaneous
  Country: NL (occurrence: NL)
  Receive Date: 20160615
  Receipt Date: 20170412
  Transmission Date: 20170830
  Serious: Yes (Death, Hospitalization, Other)
  Sender: FDA-Public Use
  Company Number: NL-ASTRAZENECA-2014SE83529

PATIENT
  Age: 30944 Day
  Sex: Male

DRUGS (4)
  1. SINTROM [Concomitant]
     Active Substance: ACENOCOUMAROL
  2. ZOLADEX [Suspect]
     Active Substance: GOSERELIN ACETATE
     Indication: PROSTATE CANCER
     Dosage: 10.8MG UNKNOWN
     Route: 058
     Dates: start: 20130904, end: 20170214
  3. ZYTIGA [Concomitant]
     Active Substance: ABIRATERONE ACETATE
  4. MORPHINE [Concomitant]
     Active Substance: MORPHINE
     Dosage: 4 GRAMME AND12.5 MG

REACTIONS (16)
  - Death [Fatal]
  - Decreased appetite [Unknown]
  - Hypersomnia [Unknown]
  - Malignant neoplasm progression [Recovering/Resolving]
  - Cancer pain [Unknown]
  - Metastases to pelvis [Unknown]
  - Atrial fibrillation [Unknown]
  - Metastasis [Unknown]
  - Abdominal discomfort [Unknown]
  - Asthenia [Unknown]
  - Nausea [Unknown]
  - Pain [Unknown]
  - Pallor [Unknown]
  - Insomnia [Unknown]
  - General physical health deterioration [Unknown]
  - Fatigue [Unknown]

NARRATIVE: CASE EVENT DATE: 20151127
